FAERS Safety Report 5599356-6 (Version None)
Quarter: 2008Q1

REPORT INFORMATION
  Report Type: 
  Country: None (occurrence: None)
  Receive Date: 20080122
  Receipt Date: 20080110
  Transmission Date: 20080703
  Serious: Yes (Other)
  Sender: FDA-Public Use
  Company Number: GB-PFIZER INC-2008000366

PATIENT
  Sex: Male

DRUGS (3)
  1. VORICONAZOLE ORAL SUSPENSION [Suspect]
     Indication: PROPHYLAXIS
     Route: 048
     Dates: start: 20070101, end: 20071226
  2. VORICONAZOLE ORAL SUSPENSION [Suspect]
     Indication: NERVOUS SYSTEM DISORDER
     Route: 048
     Dates: start: 20071227, end: 20071228
  3. VORICONAZOLE ORAL SUSPENSION [Suspect]
     Indication: ASPERGILLOSIS

REACTIONS (7)
  - ABNORMAL BEHAVIOUR [None]
  - AGGRESSION [None]
  - AGITATION [None]
  - MENTAL DISORDER [None]
  - NERVOUS SYSTEM DISORDER [None]
  - PERSONALITY CHANGE [None]
  - SEPSIS [None]
